FAERS Safety Report 7997569-7 (Version None)
Quarter: 2011Q4

REPORT INFORMATION
  Report Type: 
  Country: None (occurrence: None)
  Receive Date: 20111221
  Receipt Date: 20111216
  Transmission Date: 20120403
  Serious: Yes (Other)
  Sender: FDA-Public Use
  Company Number: US-RB-031837-11

PATIENT
  Age: 51 Year
  Sex: Male

DRUGS (1)
  1. MUCINEX FAST MAX ADULT COLD + SINUS [Suspect]
     Indication: PRODUCT USED FOR UNKNOWN INDICATION
     Dosage: 12/14/11 ONE DOSE EVERY 6 HOURS
     Route: 048

REACTIONS (3)
  - ABNORMAL DREAMS [None]
  - PARANOIA [None]
  - HALLUCINATION [None]
